FAERS Safety Report 5124484-9 (Version None)
Quarter: 2006Q4

REPORT INFORMATION
  Report Type: 
  Country: None (occurrence: None)
  Receive Date: 20060821
  Receipt Date: 20060424
  Transmission Date: 20070319
  Serious: No
  Sender: FDA-Public Use
  Company Number: TPA2006A00342

PATIENT
  Age: 45 Year
  Sex: Female
  Weight: 44.4525 kg

DRUGS (2)
  1. ROZEREM [Suspect]
     Indication: INSOMNIA
     Dosage: 8 MG, HS, PER ORAL
     Route: 048
  2. CLIMARA PATCH (ESTRADIOL) (-POULTICE OR PATCH) [Concomitant]

REACTIONS (1)
  - PALPITATIONS [None]
